FAERS Safety Report 12082767 (Version 1)
Quarter: 2016Q1

REPORT INFORMATION
  Report Type: Spontaneous
  Country: US (occurrence: None)
  Receive Date: 20160216
  Receipt Date: 20160216
  Transmission Date: 20160526
  Serious: Yes (Life-Threatening)
  Sender: FDA-Public Use
  Company Number: None

PATIENT
  Age: 71 Year
  Sex: Female
  Weight: 53.07 kg

DRUGS (18)
  1. AUGMENTIN [Concomitant]
     Active Substance: AMOXICILLIN\CLAVULANATE POTASSIUM
  2. OXYCONTIN [Concomitant]
     Active Substance: OXYCODONE HYDROCHLORIDE
  3. VITAMIN B12 [Concomitant]
     Active Substance: CYANOCOBALAMIN
  4. HYDROOEXYCHLOROQUINE [Concomitant]
  5. FORTEO [Concomitant]
     Active Substance: TERIPARATIDE
  6. CULTURELLE PROBIOTIC [Concomitant]
  7. LEVOTHYROXINE SODIUM 100 MCG MYLAN [Suspect]
     Active Substance: LEVOTHYROXINE SODIUM
     Indication: THYROID DISORDER
     Dosage: 1 PILL
     Route: 048
     Dates: start: 20151209, end: 20160210
  8. GABAPENTIN. [Concomitant]
     Active Substance: GABAPENTIN
  9. METHOTREXATE [Concomitant]
     Active Substance: METHOTREXATE
  10. CITRICAL MAX [Concomitant]
  11. NAPROXEN. [Concomitant]
     Active Substance: NAPROXEN
  12. SULGASALAZINE [Concomitant]
  13. ATENOLOL. [Concomitant]
     Active Substance: ATENOLOL
  14. OMEPRAZOLE. [Concomitant]
     Active Substance: OMEPRAZOLE
  15. KRILL OIL [Concomitant]
     Active Substance: DIETARY SUPPLEMENT
  16. VITAMIN D3 [Concomitant]
     Active Substance: CHOLECALCIFEROL
  17. LEVOTHYROXEN [Concomitant]
  18. AMLODIPINE BESYLATE. [Concomitant]
     Active Substance: AMLODIPINE BESYLATE

REACTIONS (8)
  - Weight increased [None]
  - Hypothyroidism [None]
  - Joint swelling [None]
  - Feeling cold [None]
  - Oedema [None]
  - Dyspnoea [None]
  - Fatigue [None]
  - Cardiac failure acute [None]

NARRATIVE: CASE EVENT DATE: 20160211
